FAERS Safety Report 9344511 (Version 1)
Quarter: 2013Q2

REPORT INFORMATION
  Report Type: Spontaneous
  Country: US (occurrence: None)
  Receive Date: 20130612
  Receipt Date: 20130612
  Transmission Date: 20140414
  Serious: Yes (Hospitalization)
  Sender: FDA-Public Use
  Company Number: None

PATIENT
  Sex: 0

DRUGS (1)
  1. STEROID [Suspect]

REACTIONS (4)
  - Injection site infection [None]
  - Sepsis [None]
  - Pneumonia [None]
  - Gastrointestinal disorder [None]
